FAERS Safety Report 7206619-7 (Version None)
Quarter: 2010Q4

REPORT INFORMATION
  Report Type: 
  Country: None (occurrence: None)
  Receive Date: 20101217
  Receipt Date: 20101207
  Transmission Date: 20110411
  Serious: No
  Sender: FDA-Public Use
  Company Number: 021772

PATIENT
  Sex: Female

DRUGS (2)
  1. KEPPRA [Suspect]
     Indication: CONVULSION
     Dosage: (500 MG BID, 500 MG ORAL), (2000 MG, 2 BID. ORAL)
     Route: 048
     Dates: start: 20090708
  2. KEPPRA [Suspect]
     Indication: CONVULSION
     Dosage: (500 MG BID, 500 MG ORAL), (2000 MG, 2 BID. ORAL)
     Route: 048
     Dates: start: 20090807

REACTIONS (2)
  - CONVULSION [None]
  - MEDICATION RESIDUE [None]
